FAERS Safety Report 22208268 (Version 2)
Quarter: 2023Q2

REPORT INFORMATION
  Report Type: Spontaneous
  Country: GB (occurrence: GB)
  Receive Date: 20230413
  Receipt Date: 20230428
  Transmission Date: 20230722
  Serious: Yes (Other)
  Sender: FDA-Public Use
  Company Number: GB-TEVA-2023-GB-2875686

PATIENT
  Age: 77 Year
  Sex: Male

DRUGS (5)
  1. DOXYCYCLINE [Suspect]
     Active Substance: DOXYCYCLINE
     Indication: Pemphigoid
     Route: 065
  2. CEMIPLIMAB [Suspect]
     Active Substance: CEMIPLIMAB
     Indication: Malignant melanoma
     Route: 065
  3. CEMIPLIMAB [Suspect]
     Active Substance: CEMIPLIMAB
     Indication: Prostate cancer
  4. CEMIPLIMAB [Suspect]
     Active Substance: CEMIPLIMAB
     Indication: Skin squamous cell carcinoma metastatic
  5. PREDNISOLONE [Suspect]
     Active Substance: PREDNISOLONE
     Indication: Pemphigoid
     Route: 061

REACTIONS (2)
  - Pemphigoid [Unknown]
  - Drug ineffective [Unknown]
